FAERS Safety Report 8816559 (Version 1)
Quarter: 2012Q4

REPORT INFORMATION
  Report Type: Spontaneous
  Country: US (occurrence: None)
  Receive Date: 20121001
  Receipt Date: 20121001
  Transmission Date: 20130627
  Serious: No
  Sender: FDA-Public Use
  Company Number: None

PATIENT
  Age: 54 Year
  Sex: Male
  Weight: 90.72 kg

DRUGS (1)
  1. PEGINTERFERON ALFA-2A [Suspect]

REACTIONS (9)
  - Vomiting [None]
  - Hypoaesthesia [None]
  - Decreased appetite [None]
  - Amnesia [None]
  - Disturbance in attention [None]
  - Paralysis [None]
  - Confusional state [None]
  - Activities of daily living impaired [None]
  - Depression [None]
